FAERS Safety Report 18657110 (Version 1)
Quarter: 2020Q4

REPORT INFORMATION
  Report Type: Spontaneous
  Country: NL (occurrence: NL)
  Receive Date: 20201223
  Receipt Date: 20201223
  Transmission Date: 20210114
  Serious: Yes (Life-Threatening)
  Sender: FDA-Public Use
  Company Number: NL-TEVA-2020-NL-1860338

PATIENT
  Sex: Female
  Weight: 50 kg

DRUGS (6)
  1. CALCIUMCARB/COLECALC KAUWTB 1,25G/800IE (500MG CA) / CALCI CHEW D3 KAU [Concomitant]
     Dosage: 1.25 G (GRAM) / 800 UNITS, THERAPY START DATE AND END DATE: ASKED BUT UNKNOWN
  2. PANTOPRAZOL TABLET MSR 40MG / BRAND NAME NOT SPECIFIED [Concomitant]
     Active Substance: PANTOPRAZOLE
     Dosage: 40 MG (MILLIGRAM), THERAPY START DATE AND END DATE: ASKED BUT UNKNOWN
  3. OXYCODON CAPSULE 10MG / BRAND NAME NOT SPECIFIED [Concomitant]
     Dosage: 10 MG (MILLIGRAM), THERAPY START DATE AND END DATE: ASKED BUT UNKNOWN
  4. NITROFURANTOINE CAPSULE   50MG / BRAND NAME NOT SPECIFIED [Suspect]
     Active Substance: NITROFURANTOIN
     Indication: URINARY TRACT INFECTION
     Dosage: 200 MILLIGRAM DAILY;
     Dates: start: 20201124, end: 20201125
  5. LACTULOSE STROOP 670MG/ML (500MG/G) / BRAND NAME NOT SPECIFIED [Concomitant]
     Dosage: 670 MG/ML (MILLIGRAM PER MILLILITER), THERAPY START DATE AND END DATE: ASKED BUT UNKNOWN
  6. AMLODIPINE CAPSULE 1MG / BRAND NAME NOT SPECIFIED [Concomitant]
     Dosage: 1 MG (MILLIGRAM), THERAPY START DATE AND END DATE: ASKED BUT UNKNOWN

REACTIONS (5)
  - Depressed level of consciousness [Not Recovered/Not Resolved]
  - Skin discolouration [Not Recovered/Not Resolved]
  - Headache [Not Recovered/Not Resolved]
  - Pyrexia [Not Recovered/Not Resolved]
  - Vomiting [Not Recovered/Not Resolved]
